FAERS Safety Report 23215169 (Version 2)
Quarter: 2024Q1

REPORT INFORMATION
  Report Type: Spontaneous
  Country: US (occurrence: US)
  Receive Date: 20231122
  Receipt Date: 20240305
  Transmission Date: 20240410
  Serious: Yes (Hospitalization, Other)
  Sender: FDA-Public Use
  Company Number: US-APOTEX-2023AP016551

PATIENT
  Age: 52 Year
  Sex: Female

DRUGS (3)
  1. LITHIUM [Suspect]
     Active Substance: LITHIUM
     Indication: Product used for unknown indication
     Dosage: 900 MILLIGRAM, Q.H.S.
     Route: 065
  2. LAMOTRIGINE [Concomitant]
     Active Substance: LAMOTRIGINE
     Indication: Product used for unknown indication
     Dosage: 125 MILLIGRAM, BID
     Route: 065
  3. FLUPHENAZINE [Concomitant]
     Active Substance: FLUPHENAZINE
     Indication: Product used for unknown indication
     Dosage: 5 MILLIGRAM, BID
     Route: 065

REACTIONS (15)
  - Acute kidney injury [Unknown]
  - Rhabdomyolysis [Unknown]
  - Hypoxia [Unknown]
  - Fall [Unknown]
  - Hypotonia [Unknown]
  - Acidosis [Unknown]
  - Toxicity to various agents [Unknown]
  - Pyrexia [Unknown]
  - Dysarthria [Recovering/Resolving]
  - Toxic encephalopathy [Unknown]
  - Hypotension [Unknown]
  - Leukocytosis [Unknown]
  - Ataxia [Recovering/Resolving]
  - Tremor [Unknown]
  - Stupor [Unknown]
